FAERS Safety Report 13315075 (Version 1)
Quarter: 2017Q1

REPORT INFORMATION
  Report Type: Report from Study
  Country: US (occurrence: US)
  Receive Date: 20170308
  Receipt Date: 20170308
  Transmission Date: 20170428
  Serious: No
  Sender: FDA-Public Use
  Company Number: US-AMGEN-USASL2016111422

PATIENT
  Age: 65 Year
  Sex: Female

DRUGS (1)
  1. SENSIPAR [Suspect]
     Active Substance: CINACALCET HYDROCHLORIDE
     Indication: HYPERPARATHYROIDISM SECONDARY
     Dosage: 90 MG, QD
     Route: 048

REACTIONS (10)
  - Flatulence [Unknown]
  - Cough [Unknown]
  - Insomnia [Unknown]
  - Nausea [Unknown]
  - Decreased appetite [Unknown]
  - Abdominal discomfort [Unknown]
  - Headache [Unknown]
  - Muscle spasms [Unknown]
  - Dyspnoea [Unknown]
  - Diarrhoea [Unknown]
